FAERS Safety Report 5236935-X (Version None)
Quarter: 2007Q1

REPORT INFORMATION
  Report Type: 
  Country: None (occurrence: None)
  Receive Date: 20070213
  Receipt Date: 20070207
  Transmission Date: 20070707
  Serious: Yes (Death, Hospitalization)
  Sender: FDA-Public Use
  Company Number: PHBS2007JP00822

PATIENT
  Age: 86 Year
  Sex: Female

DRUGS (3)
  1. MENESIT [Suspect]
     Indication: PARKINSONISM
     Dosage: 600 MG/DAY
     Route: 048
     Dates: start: 20070106, end: 20070112
  2. ASPARA K [Concomitant]
     Indication: HYPOKALAEMIA
     Dosage: 1800 MG/DAY
     Route: 048
     Dates: start: 20070106
  3. PARLODEL [Suspect]
     Indication: PARKINSONISM
     Dosage: 7.5 MG/DAY
     Route: 048
     Dates: start: 20070106, end: 20070112

REACTIONS (14)
  - ACUTE MYELOID LEUKAEMIA [None]
  - BRAIN NATRIURETIC PEPTIDE INCREASED [None]
  - HAEMATOCRIT DECREASED [None]
  - HAEMOGLOBIN DECREASED [None]
  - LYMPHOCYTE COUNT INCREASED [None]
  - MEAN CELL VOLUME ABNORMAL [None]
  - MONOCYTE COUNT DECREASED [None]
  - MYELOBLAST COUNT INCREASED [None]
  - MYELOCYTE COUNT DECREASED [None]
  - PANCYTOPENIA [None]
  - PLATELET COUNT DECREASED [None]
  - RED BLOOD CELL COUNT DECREASED [None]
  - RED BLOOD CELL SEDIMENTATION RATE INCREASED [None]
  - WHITE BLOOD CELL COUNT DECREASED [None]
